FAERS Safety Report 8790546 (Version 1)
Quarter: 2012Q4

REPORT INFORMATION
  Report Type: Spontaneous
  Country: US (occurrence: None)
  Receive Date: 20120912
  Receipt Date: 20120912
  Transmission Date: 20130627
  Serious: Yes (Life-Threatening, Hospitalization)
  Sender: FDA-Public Use
  Company Number: None

PATIENT
  Age: 23 Year
  Weight: 53.6 kg

DRUGS (2)
  1. JUNEL FE 1/20 [Suspect]
     Indication: PULMONARY EMBOLISM
     Dates: start: 201112, end: 201202
  2. JUNEL FE 1/20 [Suspect]
     Indication: CLOT BLOOD
     Dates: start: 201112, end: 201202

REACTIONS (2)
  - Thrombosis [None]
  - Pulmonary embolism [None]
